FAERS Safety Report 5368091-1 (Version None)
Quarter: 2007Q2

REPORT INFORMATION
  Report Type: 
  Country: None (occurrence: None)
  Receive Date: 20070622
  Receipt Date: 20070615
  Transmission Date: 20071010
  Serious: Yes (Life-Threatening, Hospitalization, Other)
  Sender: FDA-Public Use
  Company Number: BE-MERCK-0303BEL00014

PATIENT
  Age: 32 Year
  Sex: Female
  Weight: 44 kg

DRUGS (16)
  1. CRIXIVAN [Suspect]
     Indication: HIV INFECTION
     Route: 048
     Dates: start: 20000303, end: 20000301
  2. CRIXIVAN [Suspect]
     Route: 048
     Dates: start: 20000301, end: 20000401
  3. CIPROFLOXACIN [Concomitant]
     Indication: GASTROENTERITIS SALMONELLA
     Route: 048
     Dates: start: 20000305, end: 20000320
  4. CIPROFLOXACIN [Concomitant]
     Indication: TUBERCULOSIS
     Route: 048
     Dates: start: 20000305, end: 20000320
  5. STAVUDINE [Suspect]
     Indication: HIV INFECTION
     Route: 048
     Dates: start: 20000303, end: 20000401
  6. STAVUDINE [Suspect]
     Route: 048
     Dates: start: 20000501
  7. LAMIVUDINE [Suspect]
     Indication: HIV INFECTION
     Route: 048
     Dates: start: 20000303, end: 20000401
  8. LAMIVUDINE [Suspect]
     Route: 048
     Dates: start: 20000501
  9. RIFABUTIN [Concomitant]
     Indication: TUBERCULOSIS
     Route: 048
     Dates: start: 20000317, end: 20000501
  10. ISONIAZID [Concomitant]
     Indication: TUBERCULOSIS
     Route: 048
     Dates: start: 20000317
  11. ETHAMBUTOL HYDROCHLORIDE [Concomitant]
     Indication: TUBERCULOSIS
     Route: 048
     Dates: start: 20000317
  12. PYRAZINAMIDE [Concomitant]
     Indication: TUBERCULOSIS
     Route: 048
     Dates: start: 20000317
  13. SULFAMETHOXAZOLE AND TRIMETHOPRIM [Concomitant]
     Indication: PROPHYLAXIS
     Route: 048
     Dates: start: 20000313
  14. ABACAVIR SULFATE [Concomitant]
     Indication: HIV INFECTION
     Route: 065
     Dates: start: 20010101
  15. DIDANOSINE [Concomitant]
     Indication: HIV INFECTION
     Route: 065
  16. TENOFOVIR [Concomitant]
     Indication: HIV INFECTION
     Route: 065
     Dates: start: 20030201

REACTIONS (7)
  - ABDOMINAL ABSCESS [None]
  - ABDOMINAL PAIN [None]
  - ASCITES [None]
  - IMMUNE RECONSTITUTION SYNDROME [None]
  - LYMPH NODE PALPABLE [None]
  - LYMPHADENOPATHY [None]
  - PLEURAL EFFUSION [None]
